FAERS Safety Report 14250027 (Version 2)
Quarter: 2017Q4

REPORT INFORMATION
  Report Type: Other
  Country: US (occurrence: US)
  Receive Date: 20171205
  Receipt Date: 20171213
  Transmission Date: 20180321
  Serious: Yes (Hospitalization)
  Sender: FDA-Public Use
  Company Number: US-UNITED THERAPEUTICS-UNT-2017-017067

PATIENT
  Age: 73 Year
  Sex: Female
  Weight: 83.9 kg

DRUGS (1)
  1. TYVASO [Suspect]
     Active Substance: TREPROSTINIL
     Indication: PULMONARY ARTERIAL HYPERTENSION
     Dosage: 18-54 ?G, QID
     Dates: start: 20160425

REACTIONS (1)
  - Tricuspid valve replacement [Recovering/Resolving]

NARRATIVE: CASE EVENT DATE: 20171110
